FAERS Safety Report 15764557 (Version 3)
Quarter: 2019Q4

REPORT INFORMATION
  Report Type: Spontaneous
  Country: JP (occurrence: JP)
  Receive Date: 20181227
  Receipt Date: 20191003
  Transmission Date: 20200122
  Serious: Yes (Hospitalization, Other)
  Sender: FDA-Public Use
  Company Number: JP-BAUSCH-BL-2018-035917

PATIENT
  Age: 84 Year
  Sex: Male
  Weight: 60 kg

DRUGS (16)
  1. ELPLAT [Suspect]
     Active Substance: OXALIPLATIN
     Indication: METASTASES TO LUNG
     Dosage: QCY (CYCLICAL)
     Route: 041
     Dates: start: 20170426, end: 20170426
  2. ALOXI [Concomitant]
     Active Substance: PALONOSETRON HYDROCHLORIDE
     Indication: PRODUCT USED FOR UNKNOWN INDICATION
     Dates: start: 20170426, end: 2017
  3. ELPLAT [Suspect]
     Active Substance: OXALIPLATIN
     Indication: COLON CANCER
     Dosage: QCY (CYCLICAL)
     Route: 041
     Dates: start: 20170523, end: 20170523
  4. 5-FLUOROURACIL [Suspect]
     Active Substance: FLUOROURACIL
     Dosage: QCY (CYCLICAL)
     Route: 041
     Dates: start: 20170523, end: 2017
  5. FOLINIC ACID [Suspect]
     Active Substance: LEUCOVORIN
     Indication: METASTASES TO LUNG
     Dosage: QCY (CYCLICAL)
     Route: 065
  6. LEVOFOLINATE CALCIUM [Suspect]
     Active Substance: LEVOLEUCOVORIN CALCIUM
     Indication: COLON CANCER
     Route: 065
     Dates: start: 20170523, end: 2017
  7. EMEND [Concomitant]
     Active Substance: APREPITANT
     Indication: PRODUCT USED FOR UNKNOWN INDICATION
     Dates: start: 20170426, end: 2017
  8. DECADRON [Concomitant]
     Active Substance: DEXAMETHASONE
     Indication: PRODUCT USED FOR UNKNOWN INDICATION
     Dates: start: 20170426, end: 2017
  9. LEVOFOLINATE CALCIUM [Suspect]
     Active Substance: LEVOLEUCOVORIN CALCIUM
     Route: 041
     Dates: start: 20170426, end: 20170426
  10. DEXART [Concomitant]
     Active Substance: DEXAMETHASONE SODIUM PHOSPHATE
     Indication: PRODUCT USED FOR UNKNOWN INDICATION
     Dates: start: 20170426, end: 2017
  11. FOLINIC ACID [Suspect]
     Active Substance: LEUCOVORIN
     Dosage: QCY (CYCLICAL)
     Route: 065
  12. 5-FLUOROURACIL [Suspect]
     Active Substance: FLUOROURACIL
     Indication: COLON CANCER
     Dosage: QCY (CYCLICAL)
     Route: 040
     Dates: start: 20170426, end: 20170426
  13. AVASTIN [Suspect]
     Active Substance: BEVACIZUMAB
     Indication: METASTASES TO LUNG
     Dosage: QCY (CYCLICAL)
     Route: 041
     Dates: start: 20170426, end: 2017
  14. 5-FLUOROURACIL [Suspect]
     Active Substance: FLUOROURACIL
     Dosage: QCY (CYCLICAL)
     Route: 040
     Dates: start: 20170523, end: 2017
  15. 5-FLUOROURACIL [Suspect]
     Active Substance: FLUOROURACIL
     Indication: METASTASES TO LUNG
     Dosage: QCY (CYCLICAL)
     Route: 041
     Dates: start: 20170426, end: 20170429
  16. AVASTIN [Suspect]
     Active Substance: BEVACIZUMAB
     Indication: COLON CANCER
     Dosage: QCY (CYCLICAL)
     Route: 065

REACTIONS (1)
  - Gastrointestinal toxicity [Recovered/Resolved]

NARRATIVE: CASE EVENT DATE: 20171007
